FAERS Safety Report 12929551 (Version 3)
Quarter: 2017Q2

REPORT INFORMATION
  Report Type: Spontaneous
  Country: US (occurrence: US)
  Receive Date: 20161110
  Receipt Date: 20170504
  Transmission Date: 20170830
  Serious: Yes (Other)
  Sender: FDA-Public Use
  Company Number: US-ROCHE-1851658

PATIENT
  Age: 63 Year
  Sex: Male
  Weight: 106.24 kg

DRUGS (5)
  1. LISINOPRIL. [Concomitant]
     Active Substance: LISINOPRIL
     Indication: HYPERTENSION
     Route: 048
  2. TECENTRIQ [Suspect]
     Active Substance: ATEZOLIZUMAB
     Indication: TRANSITIONAL CELL CARCINOMA
     Dosage: PATIENT RECEIVED A TOTAL OF 6 DOSES
     Route: 042
     Dates: start: 20160728, end: 20161018
  3. TECENTRIQ [Suspect]
     Active Substance: ATEZOLIZUMAB
     Indication: BLADDER CANCER
  4. ATORVASTATIN [Concomitant]
     Active Substance: ATORVASTATIN
     Route: 048
  5. SUDAFED [Concomitant]
     Active Substance: PSEUDOEPHEDRINE HYDROCHLORIDE
     Indication: HYPERSENSITIVITY
     Route: 048

REACTIONS (2)
  - Clostridium difficile colitis [Not Recovered/Not Resolved]
  - Colitis [Unknown]

NARRATIVE: CASE EVENT DATE: 20161104
